FAERS Safety Report 7364305-7 (Version None)
Quarter: 2011Q1

REPORT INFORMATION
  Report Type: 
  Country: None (occurrence: None)
  Receive Date: 20110321
  Receipt Date: 20110314
  Transmission Date: 20110831
  Serious: Yes (Hospitalization)
  Sender: FDA-Public Use
  Company Number: B0706736A

PATIENT
  Sex: Female
  Weight: 63 kg

DRUGS (6)
  1. TYKERB [Suspect]
     Dosage: 1250MG PER DAY
     Route: 048
     Dates: start: 20100817, end: 20110113
  2. XELODA [Suspect]
     Dosage: 3000MG PER DAY
     Route: 048
     Dates: start: 20100716, end: 20100722
  3. ZOMETA [Concomitant]
     Indication: PROPHYLAXIS
     Route: 042
     Dates: start: 20081024
  4. FUROSEMIDE [Concomitant]
     Indication: PLEURAL EFFUSION
     Route: 048
     Dates: start: 20101203, end: 20110114
  5. WARFARIN SODIUM [Concomitant]
     Indication: THROMBOSIS
     Route: 048
     Dates: start: 20090403
  6. TYKERB [Suspect]
     Indication: BREAST CANCER
     Dosage: 1250MG PER DAY
     Route: 048
     Dates: start: 20100716, end: 20100808

REACTIONS (1)
  - CONGENITAL COAGULOPATHY [None]
